FAERS Safety Report 6028584-0 (Version None)
Quarter: 2008Q4

REPORT INFORMATION
  Report Type: 
  Country: None (occurrence: None)
  Receive Date: 20081222
  Receipt Date: 20081103
  Transmission Date: 20090506
  Serious: No
  Sender: FDA-Public Use
  Company Number: US-WYE-H06661408

PATIENT
  Age: 55 Year
  Sex: Female
  Weight: 113.5 kg

DRUGS (5)
  1. PRISTIQ [Suspect]
     Indication: ANXIETY
     Dosage: 50 MG 1X PER 1 DAY, ORAL
     Route: 048
     Dates: start: 20081013, end: 20081102
  2. CYMBALTA [Concomitant]
  3. TENORMIN [Concomitant]
  4. BUSPAR [Concomitant]
  5. LYRICA [Concomitant]

REACTIONS (2)
  - MUSCLE SPASMS [None]
  - MUSCLE TIGHTNESS [None]
